FAERS Safety Report 4660815-1 (Version None)
Quarter: 2005Q2

REPORT INFORMATION
  Report Type: 
  Country: None (occurrence: None)
  Receive Date: 20050427
  Receipt Date: 20040419
  Transmission Date: 20051028
  Serious: Yes (Hospitalization)
  Sender: FDA-Public Use
  Company Number: US-JNJFOC-20040404606

PATIENT
  Age: 30 Year
  Sex: Female

DRUGS (6)
  1. ULTRAM [Suspect]
     Indication: LIMB INJURY
     Dosage: ORAL
     Route: 048
     Dates: start: 20031101
  2. DIBENZOIRE (ALL OTHER THERAPEUTIC PRODUCTS) [Concomitant]
  3. TOPRIL (RAMIPRIL) [Concomitant]
  4. CATAPRES [Concomitant]
  5. PREVACID [Concomitant]
  6. AMLODIPINE/BENAZEPRIL HYDROCHLORIDE (AMLODIPINE) [Concomitant]

REACTIONS (1)
  - HYPERTENSION [None]
